FAERS Safety Report 9478515 (Version 3)
Quarter: 2014Q1

REPORT INFORMATION
  Report Type: Spontaneous
  Country: US (occurrence: US)
  Receive Date: 20130827
  Receipt Date: 20140116
  Transmission Date: 20141002
  Serious: Yes (Hospitalization, Other)
  Sender: FDA-Public Use
  Company Number: US-ASTRAZENECA-2011SE52579

PATIENT
  Age: 51 Year
  Sex: Male
  Weight: 109.3 kg

DRUGS (14)
  1. CRESTOR [Suspect]
     Indication: BLOOD CHOLESTEROL INCREASED
     Route: 048
     Dates: end: 201101
  2. CRESTOR [Suspect]
     Indication: BLOOD CHOLESTEROL INCREASED
     Route: 048
     Dates: start: 201101, end: 201307
  3. NEXIUM [Suspect]
     Indication: HIATUS HERNIA
     Dosage: DAILY
     Route: 048
  4. LISINOPRIL [Suspect]
     Indication: HYPERTENSION
     Route: 048
     Dates: start: 201101
  5. PRILOSEC [Interacting]
     Indication: HIATUS HERNIA
     Dosage: DAILY
     Route: 048
  6. TWO TO THREE UNSPECIFIED BLOOD THINNER [Suspect]
     Route: 065
  7. OTHER MEDICATION [Interacting]
     Route: 065
  8. NORVASC [Concomitant]
     Indication: BLOOD PRESSURE ABNORMAL
     Route: 048
     Dates: start: 201210
  9. OXYCOTIN [Concomitant]
     Indication: BACK PAIN
     Route: 048
     Dates: start: 201307
  10. BAYER ASPIRIN [Concomitant]
     Route: 048
     Dates: start: 201101
  11. PREVACID OTC [Concomitant]
     Indication: HIATUS HERNIA
     Route: 048
     Dates: start: 2009
  12. PLAVIX [Concomitant]
     Indication: ANTIPLATELET THERAPY
     Route: 048
     Dates: start: 201101
  13. FLOVENT DISKUS [Concomitant]
     Indication: CHRONIC OBSTRUCTIVE PULMONARY DISEASE
     Dosage: 250 BID
     Route: 055
  14. ALBUTEROL NEBULIZER [Concomitant]
     Indication: CHRONIC OBSTRUCTIVE PULMONARY DISEASE
     Dosage: 0.3, UNKNOWN
     Route: 055

REACTIONS (18)
  - Drug interaction [Unknown]
  - Pneumonia viral [Unknown]
  - Myocardial infarction [Recovered/Resolved]
  - Back injury [Not Recovered/Not Resolved]
  - Volvulus [Recovered/Resolved with Sequelae]
  - Gastric disorder [Unknown]
  - Nerve injury [Unknown]
  - Chronic obstructive pulmonary disease [Unknown]
  - Hypertension [Unknown]
  - Adverse drug reaction [Unknown]
  - Aggression [Unknown]
  - Blister [Not Recovered/Not Resolved]
  - Fatigue [Unknown]
  - Condition aggravated [Recovering/Resolving]
  - Drug dispensing error [Unknown]
  - Drug dose omission [Not Recovered/Not Resolved]
  - Drug ineffective [Unknown]
  - Off label use [Unknown]
